FAERS Safety Report 16301715 (Version 2)
Quarter: 2019Q2

REPORT INFORMATION
  Report Type: Spontaneous
  Country: KR (occurrence: KR)
  Receive Date: 20190511
  Receipt Date: 20190517
  Transmission Date: 20190711
  Serious: Yes (Death, Hospitalization, Other)
  Sender: FDA-Public Use
  Company Number: KR-009507513-1904KOR001820

PATIENT
  Age: 63 Year
  Sex: Female

DRUGS (33)
  1. GASTER [Concomitant]
     Active Substance: FAMOTIDINE
     Dosage: QUANTITY: 1; DAYS: 1
     Dates: start: 20190312
  2. GASTER [Concomitant]
     Active Substance: FAMOTIDINE
     Dosage: DOSE: 1, TIMES: 1, DAYS: 1
     Dates: start: 20190424
  3. SMOFKABIVEN [Concomitant]
     Active Substance: AMINO ACIDS\DEXTROSE\ELECTROLYTES NOS\SOYBEAN OIL
     Dosage: QUANTITY: 1; DAYS: 1
     Dates: start: 20190403
  4. TAMIPOOL [Concomitant]
     Active Substance: VITAMINS
     Dosage: QUANTITY: 1; DAYS: 1
     Dates: start: 20190402
  5. KEYTRUDA [Suspect]
     Active Substance: PEMBROLIZUMAB
     Dosage: DOSE: 1, TIMES: 2, DAYS: 1
     Dates: start: 20190424
  6. GASTER [Concomitant]
     Active Substance: FAMOTIDINE
     Dosage: QUANTITY: 1; DAYS: 1
     Dates: start: 20190402
  7. GASTER [Concomitant]
     Active Substance: FAMOTIDINE
     Dosage: QUANTITY: 1; DAYS: 1
     Dates: start: 20190404
  8. TAMIPOOL [Concomitant]
     Active Substance: VITAMINS
     Dosage: QUANTITY: 1; DAYS: 1
     Dates: start: 20190315
  9. GASTER [Concomitant]
     Active Substance: FAMOTIDINE
     Dosage: QUANTITY: 1; DAYS: 1
     Dates: start: 20190403
  10. GASTER [Concomitant]
     Active Substance: FAMOTIDINE
     Dosage: QUANTITY: 1; DAYS: 1
     Dates: start: 20190404
  11. GASTER [Concomitant]
     Active Substance: FAMOTIDINE
     Dosage: QUANTITY: 1; DAYS: 1
     Dates: start: 20190315
  12. GASTER [Concomitant]
     Active Substance: FAMOTIDINE
     Dosage: DOSE: 1, TIMES: 1, DAYS: 1
     Dates: start: 20190425
  13. SMOFKABIVEN [Concomitant]
     Active Substance: AMINO ACIDS\DEXTROSE\ELECTROLYTES NOS\SOYBEAN OIL
     Dosage: DOSE: 1, TIMES: 1, DAYS: 1
     Dates: start: 20190424
  14. TAMIPOOL [Concomitant]
     Active Substance: VITAMINS
     Dosage: QUANTITY: 1; DAYS: 1
     Dates: start: 20190401
  15. TAMIPOOL [Concomitant]
     Active Substance: VITAMINS
     Dosage: DOSE: 1, TIMES: 1, DAYS: 1
     Dates: start: 20190424
  16. KEYTRUDA [Suspect]
     Active Substance: PEMBROLIZUMAB
     Indication: OVARIAN CANCER
     Dosage: QUANTITY: 2; DAYS:1
     Dates: start: 20190313
  17. GASTER [Concomitant]
     Active Substance: FAMOTIDINE
     Dosage: QUANTITY: 1; DAYS: 1
     Dates: start: 20190315
  18. GASTER [Concomitant]
     Active Substance: FAMOTIDINE
     Dosage: QUANTITY: 1; DAYS: 1
     Dates: start: 20190401
  19. GASTER [Concomitant]
     Active Substance: FAMOTIDINE
     Dosage: QUANTITY: 1; DAYS: 1
     Dates: start: 20190403
  20. GASTER [Concomitant]
     Active Substance: FAMOTIDINE
     Dosage: DOSE: 1, TIMES: 1, DAYS: 1
     Dates: start: 20190425
  21. SMOFKABIVEN [Concomitant]
     Active Substance: AMINO ACIDS\DEXTROSE\ELECTROLYTES NOS\SOYBEAN OIL
     Dosage: QUANTITY: 1; DAYS: 1
     Dates: start: 20190401
  22. GASTER [Concomitant]
     Active Substance: FAMOTIDINE
     Dosage: QUANTITY: 1; DAYS: 1
     Dates: start: 20190313
  23. GASTER [Concomitant]
     Active Substance: FAMOTIDINE
     Dosage: QUANTITY: 1; DAYS: 1
     Dates: start: 20190402
  24. GASTER [Concomitant]
     Active Substance: FAMOTIDINE
     Dosage: DOSE: 1, TIMES: 1, DAYS: 1
     Dates: start: 20190424
  25. SMOFKABIVEN [Concomitant]
     Active Substance: AMINO ACIDS\DEXTROSE\ELECTROLYTES NOS\SOYBEAN OIL
     Dosage: QUANTITY: 1; DAYS: 1
     Dates: start: 20190312
  26. SMOFKABIVEN [Concomitant]
     Active Substance: AMINO ACIDS\DEXTROSE\ELECTROLYTES NOS\SOYBEAN OIL
     Dosage: QUANTITY: 1; DAYS: 1
     Dates: start: 20190313
  27. TAMIPOOL [Concomitant]
     Active Substance: VITAMINS
     Dosage: QUANTITY: 1; DAYS: 1
     Dates: start: 20190312
  28. TAMIPOOL [Concomitant]
     Active Substance: VITAMINS
     Dosage: QUANTITY: 1; DAYS: 1
     Dates: start: 20190313
  29. SMOFKABIVEN [Concomitant]
     Active Substance: AMINO ACIDS\DEXTROSE\ELECTROLYTES NOS\SOYBEAN OIL
     Dosage: QUANTITY: 1; DAYS: 1
     Dates: start: 20190315
  30. SMOFKABIVEN [Concomitant]
     Active Substance: AMINO ACIDS\DEXTROSE\ELECTROLYTES NOS\SOYBEAN OIL
     Dosage: QUANTITY: 1; DAYS: 1
     Dates: start: 20190402
  31. TAMIPOOL [Concomitant]
     Active Substance: VITAMINS
     Dosage: QUANTITY: 1; DAYS: 1
     Dates: start: 20190403
  32. KEYTRUDA [Suspect]
     Active Substance: PEMBROLIZUMAB
     Dosage: QUANTITY 2; DAYS :1
     Dates: start: 20190403
  33. GASTER [Concomitant]
     Active Substance: FAMOTIDINE
     Dosage: QUANTITY: 1; DAYS: 1
     Dates: start: 20190313

REACTIONS (4)
  - Adverse event [Unknown]
  - Adverse event [Unknown]
  - Multiple organ dysfunction syndrome [Fatal]
  - Product use in unapproved indication [Unknown]

NARRATIVE: CASE EVENT DATE: 2019
